FAERS Safety Report 9246238 (Version 1)
Quarter: 2013Q2

REPORT INFORMATION
  Report Type: Spontaneous
  Country: US (occurrence: US)
  Receive Date: 20130422
  Receipt Date: 20130422
  Transmission Date: 20140414
  Serious: No
  Sender: FDA-Public Use
  Company Number: US-009507513-1304USA008850

PATIENT
  Age: 81 Year
  Sex: Female

DRUGS (1)
  1. PROVENTIL [Suspect]
     Indication: ASTHMA
     Dosage: 2 PUFFS EVERY 4 TO 6 HOURS AS NEEDED
     Route: 055
     Dates: start: 201211

REACTIONS (3)
  - Dyspnoea [Recovered/Resolved]
  - General physical health deterioration [Recovered/Resolved]
  - Product quality issue [Unknown]
